FAERS Safety Report 5356314-4 (Version None)
Quarter: 2007Q2

REPORT INFORMATION
  Report Type: 
  Country: None (occurrence: None)
  Receive Date: 20070613
  Receipt Date: 20070604
  Transmission Date: 20071010
  Serious: Yes (Other)
  Sender: FDA-Public Use
  Company Number: JP-PFIZER INC-2007045836

PATIENT
  Age: 45 Year
  Sex: Female

DRUGS (10)
  1. ALDACTONE [Suspect]
     Dosage: DAILY DOSE:25MG-FREQ:DAILY
     Route: 048
  2. FERROMIA [Concomitant]
     Route: 048
  3. METOPROLOL TARTRATE [Concomitant]
     Route: 048
  4. LOPEMIN [Concomitant]
     Route: 048
  5. MERISLON [Concomitant]
     Route: 048
  6. CIMETIDINE HCL [Concomitant]
  7. BIOFERMIN [Concomitant]
     Route: 048
  8. TAMOXIFEN CITRATE [Concomitant]
     Route: 048
  9. ASPARA [Concomitant]
     Route: 048
  10. NOVAMIN [Concomitant]

REACTIONS (1)
  - BREAST CANCER [None]
